FAERS Safety Report 9416336 (Version 1)
Quarter: 2013Q3

REPORT INFORMATION
  Report Type: Spontaneous
  Country: FR (occurrence: None)
  Receive Date: 20130719
  Receipt Date: 20130719
  Transmission Date: 20140515
  Serious: Yes (Hospitalization)
  Sender: FDA-Public Use
  Company Number: 1754137

PATIENT
  Age: 78 Year
  Sex: Male

DRUGS (9)
  1. CARBOPLATIN [Suspect]
     Indication: LUNG ADENOCARCINOMA
     Route: 042
     Dates: start: 20121220, end: 20121220
  2. VERAPAMIL [Suspect]
     Indication: HYPERTENSION
     Route: 048
  3. PACLITAXEL [Suspect]
     Indication: LUNG ADENOCARCINOMA
     Dates: start: 20120220, end: 20120227
  4. METFORMINE [Concomitant]
  5. NOVONORM [Concomitant]
  6. PRAVASTATINA SODICA [Concomitant]
  7. UROREC [Concomitant]
  8. PERMIXON [Concomitant]
  9. SEROPRAM [Concomitant]

REACTIONS (15)
  - Pancytopenia [None]
  - Decreased appetite [None]
  - Diarrhoea [None]
  - Pain in extremity [None]
  - Weight decreased [None]
  - Asthenia [None]
  - Hiccups [None]
  - Vomiting [None]
  - Decreased appetite [None]
  - Atrial fibrillation [None]
  - Tachycardia [None]
  - Hypokalaemia [None]
  - Toxicity to various agents [None]
  - Cardiac failure [None]
  - Inhibitory drug interaction [None]
